FAERS Safety Report 17800199 (Version 1)
Quarter: 2020Q2

REPORT INFORMATION
  Report Type: Spontaneous
  Country: US (occurrence: US)
  Receive Date: 20200519
  Receipt Date: 20200519
  Transmission Date: 20200714
  Serious: No
  Sender: FDA-Public Use
  Company Number: US-JNJFOC-20200421313

PATIENT
  Sex: Female

DRUGS (1)
  1. WOMENS ROGAINE UNSCENTED [Suspect]
     Active Substance: MINOXIDIL
     Indication: ALOPECIA
     Dosage: FULL CAPFULL
     Route: 061
     Dates: start: 2019

REACTIONS (3)
  - Off label use [Unknown]
  - Product use in unapproved indication [Unknown]
  - Overdose [Unknown]

NARRATIVE: CASE EVENT DATE: 2019
